FAERS Safety Report 8397891-9 (Version None)
Quarter: 2012Q2

REPORT INFORMATION
  Report Type: 
  Country: None (occurrence: None)
  Receive Date: 20120531
  Receipt Date: 20120529
  Transmission Date: 20120825
  Serious: Yes (Death, Other)
  Sender: FDA-Public Use
  Company Number: PHEH2012US010956

PATIENT
  Sex: Female

DRUGS (6)
  1. RECLAST [Suspect]
     Indication: OSTEOPOROSIS
     Dosage: 5 MG, UNK
     Route: 042
     Dates: start: 20110608
  2. NEXIUM [Concomitant]
     Dosage: 40 MG, UNK
  3. MEGACE [Concomitant]
     Dosage: UNK UKN, UNK
  4. COZAAR [Concomitant]
     Dosage: 50 MG, UNK
  5. LASIX [Concomitant]
     Dosage: 20 MG, UNK
  6. PHENOBARBITAL TAB [Concomitant]
     Indication: INSOMNIA
     Dosage: 60 MG, UNK
     Route: 048

REACTIONS (2)
  - FAILURE TO THRIVE [None]
  - DEATH [None]
